FAERS Safety Report 7272963-0 (Version None)
Quarter: 2011Q1

REPORT INFORMATION
  Report Type: 
  Country: None (occurrence: None)
  Receive Date: 20110203
  Receipt Date: 20110201
  Transmission Date: 20110831
  Serious: Yes (Hospitalization)
  Sender: FDA-Public Use
  Company Number: A0873059A

PATIENT
  Age: 64 Year
  Sex: Male

DRUGS (2)
  1. AVANDIA [Suspect]
     Indication: DIABETES MELLITUS
     Dosage: 4MG PER DAY
     Route: 048
     Dates: start: 20060501, end: 20060801
  2. AVANDARYL [Suspect]
     Indication: DIABETES MELLITUS
     Route: 048
     Dates: start: 20070101, end: 20070501

REACTIONS (5)
  - HEMIPARESIS [None]
  - ISCHAEMIC STROKE [None]
  - AMNESIA [None]
  - TRANSIENT ISCHAEMIC ATTACK [None]
  - SPEECH DISORDER [None]
